FAERS Safety Report 5411119-0 (Version None)
Quarter: 2007Q3

REPORT INFORMATION
  Report Type: 
  Country: None (occurrence: None)
  Receive Date: 20070713
  Receipt Date: 20070419
  Transmission Date: 20080115
  Serious: No
  Sender: FDA-Public Use
  Company Number: 2007SP001426

PATIENT
  Age: 71 Year
  Sex: Female
  Weight: 68.0396 kg

DRUGS (3)
  1. LUNESTA [Suspect]
     Indication: INSOMNIA
     Dosage: 2 MG;ORAL ; 2 MG;1X;ORAL
     Route: 048
     Dates: start: 20070401, end: 20070401
  2. LUNESTA [Suspect]
     Indication: INSOMNIA
     Dosage: 2 MG;ORAL ; 2 MG;1X;ORAL
     Route: 048
     Dates: start: 20060601, end: 20070405
  3. OMEGA-3 [Concomitant]

REACTIONS (3)
  - EPSTEIN-BARR VIRUS ANTIBODY POSITIVE [None]
  - MUSCULOSKELETAL STIFFNESS [None]
  - MYALGIA [None]
